FAERS Safety Report 6910157-6 (Version None)
Quarter: 2010Q3

REPORT INFORMATION
  Report Type: 
  Country: None (occurrence: None)
  Receive Date: 20100806
  Receipt Date: 20100726
  Transmission Date: 20110219
  Serious: Yes (Hospitalization)
  Sender: FDA-Public Use
  Company Number: US-JNJFOC-20100510323

PATIENT
  Sex: Male
  Weight: 68.04 kg

DRUGS (14)
  1. REMICADE [Suspect]
     Indication: RHEUMATOID ARTHRITIS
     Route: 042
  2. REMICADE [Suspect]
     Route: 042
  3. CORTICOSTEROIDS [Suspect]
     Indication: PRODUCT USED FOR UNKNOWN INDICATION
  4. IMMUNE GLOBULIN NOS [Suspect]
     Indication: GUILLAIN-BARRE SYNDROME
  5. METOPROLOL [Suspect]
     Indication: HYPERTENSION
  6. LIPITOR [Concomitant]
     Indication: HYPERLIPIDAEMIA
  7. FISH OIL [Concomitant]
     Indication: HYPERLIPIDAEMIA
  8. MULTI-VITAMINS [Concomitant]
  9. IRON [Concomitant]
     Indication: ANAEMIA
  10. ASPIRIN [Concomitant]
  11. FUROSEMIDE [Concomitant]
     Indication: CARDIAC FAILURE CONGESTIVE
  12. DIOVAN [Concomitant]
     Indication: CARDIAC FAILURE CONGESTIVE
  13. ISORDIL [Concomitant]
     Indication: CARDIAC FAILURE CONGESTIVE
  14. DUONEB [Concomitant]
     Indication: CARDIAC FAILURE CONGESTIVE

REACTIONS (12)
  - ACTINIC KERATOSIS [None]
  - BLOOD PRESSURE DECREASED [None]
  - CARDIAC FAILURE CONGESTIVE [None]
  - GUILLAIN-BARRE SYNDROME [None]
  - HYPERGLYCAEMIA [None]
  - HYPERTENSION [None]
  - HYPERURICAEMIA [None]
  - MYOCARDIAL INFARCTION [None]
  - OEDEMA [None]
  - PNEUMONIA [None]
  - RENAL FAILURE CHRONIC [None]
  - WEIGHT INCREASED [None]
